FAERS Safety Report 6641466-6 (Version None)
Quarter: 2010Q1

REPORT INFORMATION
  Report Type: 
  Country: None (occurrence: None)
  Receive Date: 20100318
  Receipt Date: 20100305
  Transmission Date: 20100710
  Serious: Yes (Other)
  Sender: FDA-Public Use
  Company Number: PT-WATSON-2010-02628

PATIENT
  Age: 26 Year
  Sex: Male

DRUGS (4)
  1. ISONIAZID [Suspect]
     Indication: TUBERCULOSIS
     Dosage: UNK
  2. RIFAMPICIN [Suspect]
     Indication: TUBERCULOSIS
     Dosage: UNK
  3. PYRAZINAMIDE [Suspect]
     Indication: TUBERCULOSIS
     Dosage: UNK
  4. ETHAMBUTOL HYDROCHLORIDE [Suspect]
     Indication: TUBERCULOSIS
     Dosage: UNK

REACTIONS (1)
  - DRUG RASH WITH EOSINOPHILIA AND SYSTEMIC SYMPTOMS [None]
